FAERS Safety Report 12631546 (Version 2)
Quarter: 2016Q3

REPORT INFORMATION
  Report Type: Spontaneous
  Country: US (occurrence: US)
  Receive Date: 20160808
  Receipt Date: 20160808
  Transmission Date: 20161109
  Serious: No
  Sender: FDA-Public Use
  Company Number: US-BEH-2015054582

PATIENT
  Sex: Female
  Weight: 75 kg

DRUGS (22)
  1. RIZATRIPTAN. [Concomitant]
     Active Substance: RIZATRIPTAN
  2. ADVAIR HFA [Concomitant]
     Active Substance: FLUTICASONE PROPIONATE\SALMETEROL XINAFOATE
  3. MIRENA [Concomitant]
     Active Substance: LEVONORGESTREL
  4. DESONIDE. [Concomitant]
     Active Substance: DESONIDE
  5. HIZENTRA [Suspect]
     Active Substance: HUMAN IMMUNOGLOBULIN G
     Indication: HYPOGAMMAGLOBULINAEMIA
     Route: 058
  6. VITAMIN C [Concomitant]
     Active Substance: ASCORBIC ACID
  7. VITAMIN D3 [Concomitant]
     Active Substance: CHOLECALCIFEROL
  8. ONDANSETRON [Concomitant]
     Active Substance: ONDANSETRON
  9. KETOCONAZOLE. [Concomitant]
     Active Substance: KETOCONAZOLE
  10. ACIPHEX [Concomitant]
     Active Substance: RABEPRAZOLE SODIUM
  11. ACETAMINOPHEN. [Concomitant]
     Active Substance: ACETAMINOPHEN
  12. MULTIVITAMIN [Concomitant]
     Active Substance: VITAMINS
  13. QVAR [Concomitant]
     Active Substance: BECLOMETHASONE DIPROPIONATE
  14. ACARBOSE. [Concomitant]
     Active Substance: ACARBOSE
  15. FUROSEMIDE. [Concomitant]
     Active Substance: FUROSEMIDE
  16. VENTOLIN [Concomitant]
     Active Substance: ALBUTEROL SULFATE
  17. RABEPRAZOLE [Concomitant]
     Active Substance: RABEPRAZOLE
  18. IPRATROPIUM [Concomitant]
     Active Substance: IPRATROPIUM
  19. BENZONATE [Concomitant]
     Active Substance: BENZONATATE
  20. DIAZEPAM. [Concomitant]
     Active Substance: DIAZEPAM
  21. DIPHENHYDRAMINE. [Concomitant]
     Active Substance: DIPHENHYDRAMINE
  22. ALBUTEROL. [Concomitant]
     Active Substance: ALBUTEROL

REACTIONS (4)
  - Flushing [Unknown]
  - Headache [Unknown]
  - Vomiting [Unknown]
  - Nausea [Unknown]
